FAERS Safety Report 13664359 (Version 2)
Quarter: 2017Q3

REPORT INFORMATION
  Report Type: Spontaneous
  Country: NO (occurrence: NO)
  Receive Date: 20170619
  Receipt Date: 20170706
  Transmission Date: 20171127
  Serious: Yes (Hospitalization)
  Sender: FDA-Public Use
  Company Number: NO-PFIZER INC-2017214116

PATIENT
  Age: 54 Year
  Sex: Female

DRUGS (3)
  1. LETROZOL ORIFARM [Concomitant]
     Active Substance: LETROZOLE
     Indication: BREAST CANCER METASTATIC
     Dosage: 2.5 MG, 1X/DAY
     Dates: start: 20170211
  2. ZOLADEX [Concomitant]
     Active Substance: GOSERELIN ACETATE
     Indication: BREAST CANCER METASTATIC
     Dosage: 3.6 MG, UNK
     Dates: start: 20170216
  3. IBRANCE [Suspect]
     Active Substance: PALBOCICLIB
     Indication: BREAST CANCER METASTATIC
     Dosage: 125 MG, 1X/DAY
     Route: 048
     Dates: start: 20170308

REACTIONS (5)
  - Throat irritation [Recovered/Resolved]
  - Foreign body in respiratory tract [Recovered/Resolved]
  - Drug dose omission [Recovered/Resolved]
  - Product use complaint [Recovered/Resolved]
  - Mouth ulceration [Recovered/Resolved]

NARRATIVE: CASE EVENT DATE: 20170501
